FAERS Safety Report 5160727-3 (Version None)
Quarter: 2006Q4

REPORT INFORMATION
  Report Type: 
  Country: None (occurrence: None)
  Receive Date: 20061121
  Receipt Date: 20061102
  Transmission Date: 20070319
  Serious: Yes (Other)
  Sender: FDA-Public Use
  Company Number: 2006139583

PATIENT
  Age: 82 Year
  Sex: Male

DRUGS (3)
  1. CELEBREX [Suspect]
     Dosage: ORAL
     Route: 048
  2. BEXTRA [Suspect]
     Dosage: ORAL
     Route: 048
  3. VIOXX [Suspect]
     Dosage: ORAL
     Route: 048
     Dates: start: 20001201, end: 20010429

REACTIONS (4)
  - CARDIAC ARREST [None]
  - ISCHAEMIC STROKE [None]
  - PNEUMONIA [None]
  - RESPIRATORY FAILURE [None]
